FAERS Safety Report 6998384 (Version 4)
Quarter: 2017Q3

REPORT INFORMATION
  Report Type: Spontaneous
  Country: US (occurrence: US)
  Receive Date: 20090520
  Receipt Date: 20170803
  Transmission Date: 20171128
  Serious: Yes (Other)
  Sender: FDA-Public Use
  Company Number: US-ROCHE-632863

PATIENT
  Age: 68 Year
  Sex: Female
  Weight: 54.4 kg

DRUGS (3)
  1. CALCIUM [Concomitant]
     Active Substance: CALCIUM
     Route: 065
  2. BONIVA [Suspect]
     Active Substance: IBANDRONATE SODIUM
     Indication: OSTEOPOROSIS
     Dosage: OTHER INDICATION: ^LOW T SCORES^
     Route: 048
     Dates: start: 20070919, end: 20090413
  3. MULTIVITAMIN [Concomitant]
     Active Substance: VITAMINS
     Dosage: DRUG: MULTIVITAMINS
     Route: 065

REACTIONS (4)
  - Muscle spasms [Unknown]
  - Pain in extremity [Unknown]
  - Stress fracture [Unknown]
  - Femur fracture [Not Recovered/Not Resolved]

NARRATIVE: CASE EVENT DATE: 20080831
